FAERS Safety Report 5293773-X (Version None)
Quarter: 2007Q2

REPORT INFORMATION
  Report Type: 
  Country: None (occurrence: None)
  Receive Date: 20070411
  Receipt Date: 20070319
  Transmission Date: 20071010
  Serious: Yes (Other)
  Sender: FDA-Public Use
  Company Number: US-PFIZER INC-2007023353

PATIENT
  Sex: Male
  Weight: 74.8 kg

DRUGS (4)
  1. LYRICA [Suspect]
     Indication: PAIN
  2. MECLIZINE [Suspect]
     Indication: THYROID DISORDER
  3. SYNTHROID [Suspect]
     Indication: THYROID DISORDER
  4. TOPROL-XL [Concomitant]

REACTIONS (1)
  - FALL [None]
